FAERS Safety Report 13893833 (Version 1)
Quarter: 2017Q3

REPORT INFORMATION
  Report Type: Spontaneous
  Country: US (occurrence: US)
  Receive Date: 20170822
  Receipt Date: 20170822
  Transmission Date: 20171127
  Serious: No
  Sender: FDA-Public Use
  Company Number: US-GALDERMA-US16005091

PATIENT
  Age: 67 Year
  Sex: Female

DRUGS (12)
  1. ATORVASTATIN [Concomitant]
     Active Substance: ATORVASTATIN
     Indication: PRODUCT USED FOR UNKNOWN INDICATION
     Route: 048
     Dates: start: 20141106
  2. JANTOVEN [Concomitant]
     Active Substance: WARFARIN SODIUM
     Indication: ATRIAL FIBRILLATION
     Dosage: 2.5 MG
     Route: 048
     Dates: start: 20160415
  3. MAKE UP FOREVER SKIN EQUALIZER 1 [Concomitant]
     Indication: ERYTHEMA
     Route: 061
  4. CETAPHIL [Concomitant]
     Active Substance: AVOBENZONE\OCTOCRYLENE\TRICLOSAN
     Indication: THERAPEUTIC SKIN CARE TOPICAL
     Route: 061
  5. METROGEL [Suspect]
     Active Substance: METRONIDAZOLE
     Indication: ROSACEA
     Dosage: 1%
     Route: 061
     Dates: start: 2007, end: 201510
  6. METOPROLOL. [Concomitant]
     Active Substance: METOPROLOL
     Dates: start: 20141107, end: 20160506
  7. PROPAFENONE. [Concomitant]
     Active Substance: PROPAFENONE
     Dosage: 325 MG
     Route: 048
     Dates: start: 20160612
  8. METOPROLOL TARTRATE. [Concomitant]
     Active Substance: METOPROLOL TARTRATE
     Indication: PALPITATIONS
     Dosage: 25 MG
     Route: 048
  9. PROPAFENONE. [Concomitant]
     Active Substance: PROPAFENONE
     Indication: PRODUCT USED FOR UNKNOWN INDICATION
     Dosage: 450 MG
     Route: 048
     Dates: start: 20141107, end: 20160612
  10. METOPROLOL. [Concomitant]
     Active Substance: METOPROLOL
     Dosage: 25 MG
     Route: 048
     Dates: start: 20160506
  11. LANCOME DUAL FINISH POWDER AND CORRECTIVE [Concomitant]
     Indication: PIGMENTATION DISORDER
     Route: 061
  12. UNDEREYE CORRECTOR LANCOME [Concomitant]
     Route: 061

REACTIONS (4)
  - Drug ineffective [Recovered/Resolved]
  - Rosacea [Recovered/Resolved]
  - Erythema [Recovered/Resolved]
  - Skin irritation [Recovered/Resolved]

NARRATIVE: CASE EVENT DATE: 2007
